FAERS Safety Report 6390460-1 (Version None)
Quarter: 2009Q4

REPORT INFORMATION
  Report Type: 
  Country: None (occurrence: None)
  Receive Date: 20091006
  Receipt Date: 20090922
  Transmission Date: 20100525
  Serious: Yes (Death, Hospitalization)
  Sender: FDA-Public Use
  Company Number: SE-PFIZER INC-2009260340

PATIENT
  Age: 82 Year

DRUGS (9)
  1. BLINDED *NO SUBJECT DRUG [Suspect]
     Indication: CARDIAC FAILURE
     Dosage: UNK
     Dates: start: 20090629
  2. BLINDED *PLACEBO [Suspect]
     Indication: CARDIAC FAILURE
     Dosage: UNK
     Dates: start: 20090629
  3. BLINDED EPLERENONE [Suspect]
     Indication: CARDIAC FAILURE
     Dosage: UNK
     Dates: start: 20090629
  4. REPAGLINIDE [Concomitant]
     Dosage: UNK
     Dates: start: 20070612
  5. ENALAPRIL [Concomitant]
     Dosage: UNK
     Route: 048
     Dates: start: 20071203
  6. WARFARIN [Concomitant]
     Dosage: UNK
     Dates: start: 20060228
  7. FUROSEMIDE [Concomitant]
     Dosage: UNK
     Dates: start: 20060228
  8. METOPROLOL [Concomitant]
     Dosage: UNK
     Route: 048
     Dates: start: 20060228
  9. SIMVASTATIN [Concomitant]
     Dosage: UNK
     Dates: start: 20040218

REACTIONS (1)
  - VENTRICULAR FIBRILLATION [None]
